FAERS Safety Report 16996420 (Version 2)
Quarter: 2020Q2

REPORT INFORMATION
  Report Type: Spontaneous
  Country: US (occurrence: US)
  Receive Date: 20191105
  Receipt Date: 20200624
  Transmission Date: 20200713
  Serious: Yes (Other)
  Sender: FDA-Public Use
  Company Number: US-BAYER-2019-196207

PATIENT
  Age: 27 Year
  Sex: Female
  Weight: 62.13 kg

DRUGS (1)
  1. MIRENA [Suspect]
     Active Substance: LEVONORGESTREL
     Indication: CONTRACEPTION
     Dosage: 20 ?G PER DAY CONTINUOUSLY
     Route: 015
     Dates: start: 20190924, end: 20190924

REACTIONS (5)
  - Procedural pain [Recovered/Resolved]
  - Uterine perforation [Recovered/Resolved]
  - Device difficult to use [None]
  - Medical device monitoring error [None]
  - Contraindicated device used [None]

NARRATIVE: CASE EVENT DATE: 20190924
